FAERS Safety Report 8177179-1 (Version None)
Quarter: 2012Q1

REPORT INFORMATION
  Report Type: 
  Country: None (occurrence: None)
  Receive Date: 20120301
  Receipt Date: 20120223
  Transmission Date: 20120608
  Serious: Yes (Death, Other)
  Sender: FDA-Public Use
  Company Number: US-BAYER-200940514NA

PATIENT
  Age: 50 Year
  Sex: Female
  Weight: 70.295 kg

DRUGS (27)
  1. ALBUMIN (HUMAN) [Concomitant]
     Dosage: 4 U, UNK
     Route: 042
     Dates: start: 20071031
  2. ACETYLSALICYLIC ACID SRT [Concomitant]
     Dosage: 325 MG, DAILY
     Route: 048
  3. HEPARIN [Concomitant]
     Dosage: UNK
     Route: 042
     Dates: start: 20071031
  4. SUFENTANIL CITRATE [Concomitant]
     Dosage: UNK
     Route: 042
     Dates: start: 20071031
  5. EPINEPHRINE [Concomitant]
     Dosage: UNK
     Route: 042
     Dates: start: 20071031
  6. VASOPRESSIN [Concomitant]
     Dosage: UNK
     Route: 042
     Dates: start: 20071031
  7. NITROGLYCERIN [Concomitant]
     Dosage: UNK
     Route: 042
     Dates: start: 20071031
  8. DOBUTREX [Concomitant]
     Dosage: UNK
     Route: 042
     Dates: start: 20071031
  9. LASIX [Concomitant]
     Dosage: 80 MG, BID
     Route: 042
  10. ALBUTEROL [Concomitant]
     Dosage: 2 PUFF(S), PRN
  11. FLUZONE [Concomitant]
     Dosage: 0.5 ML, UNK
     Route: 030
     Dates: start: 20071026, end: 20071026
  12. TRASYLOL [Suspect]
     Indication: CORONARY ARTERY BYPASS
     Dosage: 200 ML, UNK
     Route: 042
     Dates: start: 20071031, end: 20071031
  13. TRASYLOL [Suspect]
     Indication: INTRA-AORTIC BALLOON PLACEMENT
  14. RED BLOOD CELLS [Concomitant]
     Dosage: 2 U, UNK
     Route: 042
     Dates: start: 20071031
  15. NOREPINEPHRINE BITARTRATE [Concomitant]
     Dosage: UNK
     Route: 042
     Dates: start: 20071031
  16. AVAPRO [Concomitant]
     Dosage: 300 MG, UNK
  17. LOPRESSOR [Concomitant]
     Dosage: 12.5 MG, BID
     Route: 048
  18. PROTAMINE SULFATE [Concomitant]
     Dosage: UNK
     Route: 042
     Dates: start: 20071031
  19. LOVENOX [Concomitant]
     Dosage: 30 MG, UNK
     Route: 058
  20. TOPROL-XL [Concomitant]
     Dosage: 25 MG, DAILY
     Route: 048
  21. APROTININ [Concomitant]
     Dosage: UNK
     Route: 042
     Dates: start: 20071031
  22. PNEUMOVAX 23 [Concomitant]
     Dosage: 0.5 ML, UNK
     Route: 030
     Dates: start: 20071026, end: 20071026
  23. LISINOPRIL [Concomitant]
  24. SODIUM BICARBONATE [Concomitant]
     Dosage: UNK
     Route: 042
     Dates: start: 20071031
  25. CALCIUM CHLORIDE [Concomitant]
     Dosage: UNK
     Route: 042
     Dates: start: 20071031
  26. RED BLOOD CELLS [Concomitant]
     Dosage: 1344 ML, UNK
     Route: 042
     Dates: start: 20071031
  27. VANCOMYCIN [Concomitant]
     Dosage: 1 G, UNK
     Dates: start: 20071031

REACTIONS (16)
  - DEATH [None]
  - PAIN [None]
  - CARDIOGENIC SHOCK [None]
  - STRESS [None]
  - ANHEDONIA [None]
  - CARDIAC ARREST [None]
  - RENAL FAILURE CHRONIC [None]
  - FEAR [None]
  - MULTI-ORGAN FAILURE [None]
  - EMOTIONAL DISTRESS [None]
  - ANXIETY [None]
  - RENAL IMPAIRMENT [None]
  - INJURY [None]
  - RENAL INJURY [None]
  - RENAL FAILURE [None]
  - UNEVALUABLE EVENT [None]
